FAERS Safety Report 16158023 (Version 1)
Quarter: 2019Q2

REPORT INFORMATION
  Report Type: Spontaneous
  Country: US (occurrence: US)
  Receive Date: 20190301
  Receipt Date: 20190301
  Transmission Date: 20190711
  Serious: Yes (Hospitalization)
  Sender: FDA-Public Use
  Company Number: None

PATIENT
  Age: 61 Year
  Sex: Female

DRUGS (1)
  1. ETOPOSIDE CAP 50MG [Suspect]
     Active Substance: ETOPOSIDE
     Dates: start: 20190206

REACTIONS (4)
  - Speech disorder [None]
  - Dehydration [None]
  - Constipation [None]
  - Fatigue [None]

NARRATIVE: CASE EVENT DATE: 20190215
